FAERS Safety Report 6623851-1 (Version None)
Quarter: 2010Q1

REPORT INFORMATION
  Report Type: 
  Country: None (occurrence: None)
  Receive Date: 20100310
  Receipt Date: 20100301
  Transmission Date: 20100710
  Serious: Yes (Hospitalization, Other)
  Sender: FDA-Public Use
  Company Number: PHEH2009US16402

PATIENT
  Sex: Female
  Weight: 81 kg

DRUGS (3)
  1. EXJADE [Suspect]
     Indication: MYELODYSPLASTIC SYNDROME
     Dosage: 1250MG/DAY
     Route: 048
     Dates: start: 20080815, end: 20090522
  2. EXJADE [Suspect]
     Indication: IRON OVERLOAD
  3. DIURETICS [Concomitant]

REACTIONS (9)
  - BLOOD CREATININE INCREASED [None]
  - BLOOD UREA INCREASED [None]
  - HAEMOGLOBIN DECREASED [None]
  - NEPHROPATHY TOXIC [None]
  - POLLAKIURIA [None]
  - PYREXIA [None]
  - RED BLOOD CELLS URINE POSITIVE [None]
  - URINARY TRACT INFECTION [None]
  - WHITE BLOOD CELLS URINE POSITIVE [None]
